FAERS Safety Report 20244536 (Version 3)
Quarter: 2022Q1

REPORT INFORMATION
  Report Type: Spontaneous
  Country: CA (occurrence: CA)
  Receive Date: 20211229
  Receipt Date: 20220106
  Transmission Date: 20220423
  Serious: Yes (Other)
  Sender: FDA-Public Use
  Company Number: None

PATIENT
  Age: 41 Year
  Sex: Female

DRUGS (9)
  1. SULFASALAZINE [Suspect]
     Active Substance: SULFASALAZINE
     Indication: Rheumatoid arthritis
     Dosage: 1500 MG
  2. METHOTREXATE [Suspect]
     Active Substance: METHOTREXATE
     Indication: Rheumatoid arthritis
     Dosage: 25 MG
  3. HYDROXYCHLOROQUINE SULFATE [Suspect]
     Active Substance: HYDROXYCHLOROQUINE SULFATE
     Indication: Rheumatoid arthritis
     Dosage: 200 MG, QD
     Route: 065
  4. ARAVA [Suspect]
     Active Substance: LEFLUNOMIDE
     Indication: Rheumatoid arthritis
     Dosage: 10 MG, QD
     Route: 048
  5. ACTEMRA [Suspect]
     Active Substance: TOCILIZUMAB
     Indication: Rheumatoid arthritis
     Route: 065
  6. ORENCIA [Suspect]
     Active Substance: ABATACEPT
     Indication: Rheumatoid arthritis
  7. ENBREL [Suspect]
     Active Substance: ETANERCEPT
     Indication: Rheumatoid arthritis
     Route: 065
  8. REMICADE [Suspect]
     Active Substance: INFLIXIMAB
     Indication: Rheumatoid arthritis
     Route: 042
  9. ANAKINRA [Concomitant]
     Active Substance: ANAKINRA
     Indication: Product used for unknown indication

REACTIONS (18)
  - Drug intolerance [Unknown]
  - C-reactive protein abnormal [Unknown]
  - Synovitis [Unknown]
  - Red blood cell sedimentation rate abnormal [Unknown]
  - Rheumatoid factor positive [Unknown]
  - Drug hypersensitivity [Unknown]
  - Vomiting [Unknown]
  - Hepatitis [Unknown]
  - Hypersensitivity [Unknown]
  - Contraindicated product administered [Unknown]
  - Drug ineffective [Unknown]
  - Hepatitis [Unknown]
  - Synovitis [Unknown]
  - Hypersensitivity [Unknown]
  - Drug hypersensitivity [Unknown]
  - Drug ineffective [Unknown]
  - Rheumatoid factor positive [Unknown]
  - Red blood cell sedimentation rate abnormal [Unknown]
